FAERS Safety Report 5003163-2 (Version None)
Quarter: 2006Q2

REPORT INFORMATION
  Report Type: 
  Country: None (occurrence: None)
  Receive Date: 20060516
  Receipt Date: 20060509
  Transmission Date: 20061013
  Serious: Yes (Other)
  Sender: FDA-Public Use
  Company Number: US-BRISTOL-MYERS SQUIBB COMPANY-13372537

PATIENT
  Age: 64 Year
  Sex: Male
  Weight: 94 kg

DRUGS (7)
  1. ERBITUX [Suspect]
     Indication: COLON CANCER METASTATIC
     Dosage: FIRST DOSE-880 MG INIT/71 CC'S INFUSED, THEN EVENTS OCCURRED/INTERPT/THEN REST OF 880 MG INFUSED.
     Route: 042
     Dates: start: 20060509, end: 20060509
  2. ATIVAN [Concomitant]
  3. BENADRYL [Concomitant]
     Indication: PREMEDICATION
     Route: 042
     Dates: start: 20060509, end: 20060509
  4. COMPAZINE [Concomitant]
  5. DILAUDID [Concomitant]
  6. SENOKOT [Concomitant]
  7. TYLENOL (CAPLET) [Concomitant]
     Indication: PREMEDICATION
     Dosage: ADMINISTERED 30 MINUTES PRIOR TO CETUXIMAB ADMINISTRATION.
     Route: 048
     Dates: start: 20060509, end: 20060509

REACTIONS (4)
  - CHEST DISCOMFORT [None]
  - PRURITUS [None]
  - SOMNOLENCE [None]
  - URTICARIA [None]
